FAERS Safety Report 6593023-8 (Version None)
Quarter: 2010Q1

REPORT INFORMATION
  Report Type: 
  Country: None (occurrence: None)
  Receive Date: 20100222
  Receipt Date: 20100212
  Transmission Date: 20100710
  Serious: Yes (Hospitalization)
  Sender: FDA-Public Use
  Company Number: FR-JNJFOC-20100205733

PATIENT
  Age: 79 Year
  Sex: Female

DRUGS (5)
  1. REMINYL LP [Suspect]
     Indication: DEMENTIA ALZHEIMER'S TYPE
     Route: 065
  2. REMINYL LP [Suspect]
     Route: 065
  3. REMINYL LP [Suspect]
     Route: 065
  4. SEROPLEX [Concomitant]
     Route: 065
  5. XANAX [Concomitant]
     Route: 065

REACTIONS (8)
  - AGITATION [None]
  - CONFUSIONAL STATE [None]
  - FALL [None]
  - FRACTURE [None]
  - PULMONARY EMBOLISM [None]
  - SUICIDAL IDEATION [None]
  - SUICIDE ATTEMPT [None]
  - URINARY RETENTION [None]
